FAERS Safety Report 6081803-7 (Version None)
Quarter: 2009Q1

REPORT INFORMATION
  Report Type: 
  Country: None (occurrence: None)
  Receive Date: 20090128
  Receipt Date: 20080408
  Transmission Date: 20090719
  Serious: Yes (Other)
  Sender: FDA-Public Use
  Company Number: ACO_00457_2008

PATIENT
  Age: 22 Year
  Sex: Female
  Weight: 69.4003 kg

DRUGS (2)
  1. ZANAFLEX [Suspect]
     Indication: MIGRAINE
     Dosage: (^6 OR 7^ 4 MG TABLETS 1X [NOT THE PRESCRIBED AMOUNT] ORAL), (4 MG, FREQUENCY UNKNOWN ORAL
     Route: 048
     Dates: start: 20080408, end: 20080408
  2. TOPAMAX (UNKNOWN UNTIL CONTINUING) [Concomitant]

REACTIONS (3)
  - ACCIDENTAL OVERDOSE [None]
  - OFF LABEL USE [None]
  - SOMNOLENCE [None]
